FAERS Safety Report 21954816 (Version 1)
Quarter: 2023Q1

REPORT INFORMATION
  Report Type: Report from Study
  Country: US (occurrence: US)
  Receive Date: 20230205
  Receipt Date: 20230205
  Transmission Date: 20230417
  Serious: Yes (Other)
  Sender: FDA-Public Use
  Company Number: US-ABBVIE-4292404

PATIENT
  Age: 51 Year
  Sex: Male

DRUGS (1)
  1. SKYRIZI [Suspect]
     Active Substance: RISANKIZUMAB-RZAA
     Indication: Psoriasis
     Route: 058
     Dates: start: 20220831, end: 20220928

REACTIONS (8)
  - Injection site abscess [Unknown]
  - Eyelid infection [Unknown]
  - Hyperhidrosis [Recovered/Resolved]
  - Dysgeusia [Recovered/Resolved]
  - Coronavirus infection [Recovered/Resolved]
  - Staphylococcal infection [Recovered/Resolved]
  - Psoriasis [Unknown]
  - Ear infection [Unknown]

NARRATIVE: CASE EVENT DATE: 20220928
